FAERS Safety Report 22319569 (Version 2)
Quarter: 2023Q2

REPORT INFORMATION
  Report Type: Spontaneous
  Country: US (occurrence: US)
  Receive Date: 20230515
  Receipt Date: 20230516
  Transmission Date: 20230722
  Serious: No
  Sender: FDA-Public Use
  Company Number: US-BAXTER-2023BAX021500

PATIENT

DRUGS (3)
  1. NEXTERONE [Suspect]
     Active Substance: AMIODARONE HYDROCHLORIDE
     Dosage: 150 MG AT UNSPECIFIED FREQUENCY
     Route: 040
  2. NEXTERONE [Suspect]
     Active Substance: AMIODARONE HYDROCHLORIDE
     Dosage: INFUSION AT A RATE OF 1MG/MIN
     Route: 050
  3. OXYGEN [Suspect]
     Active Substance: OXYGEN
     Dosage: 98% ON 2 L NASAL CANULA

REACTIONS (1)
  - Dyspnoea [Recovered/Resolved]
